FAERS Safety Report 19244574 (Version 17)
Quarter: 2025Q4

REPORT INFORMATION
  Report Type: Spontaneous
  Country: US (occurrence: US)
  Receive Date: 20210511
  Receipt Date: 20251106
  Transmission Date: 20260117
  Serious: No
  Sender: PFIZER
  Company Number: US-PFIZER INC-2021210817

PATIENT
  Age: 76 Year
  Sex: Female
  Weight: 62.3 kg

DRUGS (3)
  1. IBRANCE [Suspect]
     Active Substance: PALBOCICLIB
     Indication: Breast cancer female
     Dosage: 125 MG
  2. IBRANCE [Suspect]
     Active Substance: PALBOCICLIB
     Dosage: 75 MG, CYCLIC, WITH WATER EVERY MORNING ABOUT 10:00 FOR 21 DAYS AND OFF 7 DAYS
     Dates: start: 2017
  3. FEMARA [Concomitant]
     Active Substance: LETROZOLE
     Indication: Breast cancer female
     Dosage: UNK
     Dates: start: 2012

REACTIONS (6)
  - Vomiting [Recovered/Resolved]
  - Nausea [Recovered/Resolved]
  - Illness [Recovered/Resolved]
  - Abdominal discomfort [Unknown]
  - Impaired healing [Unknown]
  - Product use complaint [Unknown]

NARRATIVE: CASE EVENT DATE: 20200101
